FAERS Safety Report 22595090 (Version 1)
Quarter: 2023Q2

REPORT INFORMATION
  Report Type: Spontaneous
  Country: US (occurrence: None)
  Receive Date: 20230612
  Receipt Date: 20230612
  Transmission Date: 20230721
  Serious: Yes (Other)
  Sender: FDA-Public Use
  Company Number: None

PATIENT
  Age: 57 Year
  Sex: Female
  Weight: 51.75 kg

DRUGS (4)
  1. RAMELTEON [Suspect]
     Active Substance: RAMELTEON
     Indication: Insomnia
     Dosage: FREQUENCY : AT BEDTIME;?
     Route: 048
     Dates: start: 20230524, end: 20230609
  2. TAMSULOSIN [Concomitant]
     Active Substance: TAMSULOSIN
  3. VITAMINS [Concomitant]
     Active Substance: VITAMINS
  4. LITHIUM ASPARTATE [Concomitant]
     Active Substance: LITHIUM ASPARTATE

REACTIONS (4)
  - Suicidal ideation [None]
  - Anger [None]
  - Anxiety disorder [None]
  - Personality change [None]

NARRATIVE: CASE EVENT DATE: 20230609
